FAERS Safety Report 5025479-6 (Version None)
Quarter: 2006Q2

REPORT INFORMATION
  Report Type: 
  Country: None (occurrence: None)
  Receive Date: 20060608
  Receipt Date: 20060524
  Transmission Date: 20061013
  Serious: Yes (Hospitalization)
  Sender: FDA-Public Use
  Company Number: 2006BI007625

PATIENT
  Age: 70 Year
  Sex: Female
  Weight: 45.3597 kg

DRUGS (3)
  1. AVONEX [Suspect]
     Indication: MULTIPLE SCLEROSIS
     Dosage: 30 UG; QW; IM
     Route: 030
     Dates: start: 20000101, end: 20040101
  2. AVONEX [Suspect]
     Indication: MULTIPLE SCLEROSIS
     Dosage: 30 UG; QW; IM
     Route: 030
     Dates: start: 20040101, end: 20060301
  3. HYDROCODONE [Concomitant]

REACTIONS (6)
  - ABASIA [None]
  - ANAEMIA [None]
  - FATIGUE [None]
  - GASTROENTERITIS BACTERIAL [None]
  - IMMUNE SYSTEM DISORDER [None]
  - PAIN IN EXTREMITY [None]
